FAERS Safety Report 18971228 (Version 3)
Quarter: 2021Q1

REPORT INFORMATION
  Report Type: Spontaneous
  Country: US (occurrence: US)
  Receive Date: 20210305
  Receipt Date: 20210331
  Transmission Date: 20210420
  Serious: No
  Sender: FDA-Public Use
  Company Number: US-GRANULES-US-2021GRASPO00173

PATIENT
  Age: 69 Year
  Sex: Male
  Weight: 210 kg

DRUGS (3)
  1. ACETAMINOPHEN. [Suspect]
     Active Substance: ACETAMINOPHEN
     Indication: ANALGESIC THERAPY
     Route: 048
     Dates: start: 202102, end: 202102
  2. ACETAMINOPHEN. [Suspect]
     Active Substance: ACETAMINOPHEN
     Indication: BACK PAIN
  3. ACETAMINOPHEN. [Suspect]
     Active Substance: ACETAMINOPHEN
     Indication: ARTHRITIS
     Route: 048
     Dates: start: 202102, end: 202102

REACTIONS (9)
  - Musculoskeletal stiffness [Unknown]
  - Drug ineffective [Unknown]
  - Peripheral swelling [Unknown]
  - Muscle spasms [Unknown]
  - Groin pain [Unknown]
  - Swelling [Unknown]
  - Rash [Unknown]
  - Condition aggravated [Unknown]
  - Neck pain [Unknown]
